FAERS Safety Report 5099701-4 (Version None)
Quarter: 2006Q3

REPORT INFORMATION
  Report Type: 
  Country: None (occurrence: None)
  Receive Date: 20060908
  Receipt Date: 20040720
  Transmission Date: 20061208
  Serious: Yes (Disabling)
  Sender: FDA-Public Use
  Company Number: 006-39-73

PATIENT
  Age: 78 Year
  Sex: Female

DRUGS (1)
  1. CEFTIN [Suspect]
     Indication: DRUG USE FOR UNKNOWN INDICATION
     Route: 048
     Dates: start: 20021001

REACTIONS (16)
  - AKATHISIA [None]
  - ARTHRALGIA [None]
  - ATRIAL FIBRILLATION [None]
  - COUGH [None]
  - FATIGUE [None]
  - GAIT DISTURBANCE [None]
  - HYPOAESTHESIA [None]
  - ILL-DEFINED DISORDER [None]
  - INCREASED TENDENCY TO BRUISE [None]
  - LOSS OF PROPRIOCEPTION [None]
  - NERVE INJURY [None]
  - PAIN [None]
  - PARAESTHESIA [None]
  - POSITIVE ROMBERGISM [None]
  - SENSORY LOSS [None]
  - TREMOR [None]
